FAERS Safety Report 10691449 (Version 2)
Quarter: 2015Q2

REPORT INFORMATION
  Report Type: Spontaneous
  Country: US (occurrence: US)
  Receive Date: 20150105
  Receipt Date: 20150406
  Transmission Date: 20150821
  Serious: Yes (Hospitalization)
  Sender: FDA-Public Use
  Company Number: US-BAYER-2015-000844

PATIENT
  Age: 24 Year
  Sex: Female
  Weight: 107.3 kg

DRUGS (1)
  1. MIRENA [Suspect]
     Active Substance: LEVONORGESTREL
     Indication: CONTRACEPTION
     Dosage: 20 MCG/24HR, CONT
     Route: 015
     Dates: start: 20110902, end: 20130418

REACTIONS (10)
  - Pain [None]
  - Anxiety [Not Recovered/Not Resolved]
  - Abdominal pain [None]
  - Injury [None]
  - Emotional distress [None]
  - Uterine perforation [None]
  - Flank pain [None]
  - Pelvic organ injury [None]
  - Scar [None]
  - Depression [Not Recovered/Not Resolved]

NARRATIVE: CASE EVENT DATE: 201304
